FAERS Safety Report 9351314 (Version 1)
Quarter: 2013Q2

REPORT INFORMATION
  Report Type: Spontaneous
  Country: US (occurrence: US)
  Receive Date: 20130617
  Receipt Date: 20130617
  Transmission Date: 20140414
  Serious: Yes (Hospitalization, Other)
  Sender: FDA-Public Use
  Company Number: PHHY2013US059581

PATIENT
  Age: 21 Year
  Sex: Male

DRUGS (1)
  1. PROPRANOLOL [Suspect]
     Dosage: 1.7 G, UNK

REACTIONS (6)
  - Respiratory arrest [Unknown]
  - Coma [Recovered/Resolved]
  - Tachycardia [Unknown]
  - Blood pressure systolic decreased [Unknown]
  - Grand mal convulsion [Recovered/Resolved]
  - Overdose [Unknown]
